FAERS Safety Report 7865254-8 (Version None)
Quarter: 2011Q4

REPORT INFORMATION
  Report Type: 
  Country: None (occurrence: None)
  Receive Date: 20111028
  Receipt Date: 20101109
  Transmission Date: 20120403
  Serious: No
  Sender: FDA-Public Use
  Company Number: US-GLAXOSMITHKLINE-A0891406A

PATIENT
  Sex: Male

DRUGS (3)
  1. NO CONCURRENT MEDICATION [Concomitant]
  2. ALBUTEROL [Suspect]
     Indication: CHRONIC OBSTRUCTIVE PULMONARY DISEASE
     Route: 055
  3. ADVAIR DISKUS 100/50 [Suspect]
     Indication: CHRONIC OBSTRUCTIVE PULMONARY DISEASE
     Dosage: 1PUFF TWICE PER DAY
     Route: 055

REACTIONS (4)
  - WEIGHT INCREASED [None]
  - WOUND [None]
  - SCAR [None]
  - TONGUE COATED [None]
